FAERS Safety Report 15582683 (Version 1)
Quarter: 2018Q4

REPORT INFORMATION
  Report Type: Spontaneous
  Country: PL (occurrence: PL)
  Receive Date: 20181103
  Receipt Date: 20181103
  Transmission Date: 20190205
  Serious: Yes (Other)
  Sender: FDA-Public Use
  Company Number: PL-ROCHE-2208843

PATIENT
  Age: 26 Year
  Sex: Male

DRUGS (2)
  1. VEMURAFENIB. [Suspect]
     Active Substance: VEMURAFENIB
     Route: 065
  2. VEMURAFENIB. [Suspect]
     Active Substance: VEMURAFENIB
     Indication: MALIGNANT MELANOMA
     Route: 065
     Dates: start: 201203

REACTIONS (6)
  - Drug intolerance [Unknown]
  - Alopecia [Unknown]
  - Seborrhoeic keratosis [Unknown]
  - Actinic keratosis [Unknown]
  - Photosensitivity reaction [Unknown]
  - Transaminases increased [Unknown]
